FAERS Safety Report 8339519 (Version 2)
Quarter: 2016Q1

REPORT INFORMATION
  Report Type: Report from Study
  Country: US (occurrence: US)
  Receive Date: 20120117
  Receipt Date: 20160302
  Transmission Date: 20160526
  Serious: Yes (Death)
  Sender: FDA-Public Use
  Company Number: US-ROCHE-1028170

PATIENT
  Sex: Male

DRUGS (1)
  1. XELODA [Suspect]
     Active Substance: CAPECITABINE
     Indication: GASTRIC CANCER
     Dosage: LAST DOSE : AUG 2011?(2 TABLETS, TWICE A DAY) TO BE TAKEN FOR 8 CYCLES CONTINUOUSLY
     Route: 048
     Dates: start: 20110729, end: 20110913

REACTIONS (1)
  - Metastatic neoplasm [Fatal]
